FAERS Safety Report 24174534 (Version 2)
Quarter: 2024Q3

REPORT INFORMATION
  Report Type: Spontaneous
  Country: US (occurrence: US)
  Receive Date: 20240805
  Receipt Date: 20240819
  Transmission Date: 20241017
  Serious: Yes (Disabling)
  Sender: MYLAN
  Company Number: US-MYLANLABS-2024M1072257

PATIENT
  Age: 71 Year
  Sex: Female
  Weight: 90.71 kg

DRUGS (5)
  1. GABAPENTIN [Suspect]
     Active Substance: GABAPENTIN
     Indication: Neuropathy peripheral
     Dosage: 100 MILLIGRAM, QD (1 CAPSULE AT BEDTIME)
     Route: 065
  2. GABAPENTIN [Suspect]
     Active Substance: GABAPENTIN
     Indication: Rheumatoid arthritis
  3. PAXLOVID [Suspect]
     Active Substance: NIRMATRELVIR\RITONAVIR
     Indication: COVID-19
     Dosage: UNK, BID
     Route: 048
     Dates: start: 20240120, end: 20240124
  4. FAMOTIDINE [Suspect]
     Active Substance: FAMOTIDINE
     Indication: Gastrooesophageal reflux disease
     Dosage: 200 MILLIGRAM, QD (1XDAY)
     Route: 042
  5. METOPROLOL [Suspect]
     Active Substance: METOPROLOL
     Indication: Tachycardia
     Dosage: 25 MILLIGRAM, QD (1XDAY)
     Route: 065

REACTIONS (7)
  - Biliary colic [Recovered/Resolved]
  - Cholelithiasis [Recovered/Resolved]
  - Abdominal pain [Recovered/Resolved]
  - Abdominal pain upper [Not Recovered/Not Resolved]
  - COVID-19 [Recovered/Resolved]
  - Diarrhoea [Not Recovered/Not Resolved]
  - Chest pain [Recovered/Resolved]

NARRATIVE: CASE EVENT DATE: 20240121
